APPROVED DRUG PRODUCT: TERIFLUNOMIDE
Active Ingredient: TERIFLUNOMIDE
Strength: 14MG
Dosage Form/Route: TABLET;ORAL
Application: A209601 | Product #002
Applicant: APOTEX INC
Approved: Nov 2, 2018 | RLD: No | RS: No | Type: DISCN